FAERS Safety Report 10210930 (Version 3)
Quarter: 2014Q3

REPORT INFORMATION
  Report Type: Spontaneous
  Country: US (occurrence: None)
  Receive Date: 20140528
  Receipt Date: 20140731
  Transmission Date: 20150326
  Serious: Yes (Hospitalization, Other)
  Sender: FDA-Public Use
  Company Number: 2014US003304

PATIENT
  Age: 31 Year
  Sex: Female

DRUGS (11)
  1. VITAMIN B1 (VITAMIN B1) [Concomitant]
  2. PERCOCET (OXYCODONE HYDROCHLORIDE, PARACETAMOL) [Concomitant]
  3. METHOTREXATE (METHOTREXATE SODIUM) [Concomitant]
     Active Substance: METHOTREXATE SODIUM
  4. VYVANSE [Concomitant]
     Active Substance: LISDEXAMFETAMINE DIMESYLATE
  5. FOLIC ACID (FOLIC ACID) [Concomitant]
     Active Substance: FOLIC ACID
  6. COLACE [Concomitant]
     Active Substance: DOCUSATE SODIUM
  7. DEXAMETHASONE (DEXAMETHASONE) [Concomitant]
     Active Substance: DEXAMETHASONE
  8. AMBIEN CR (ZOLPIDEM TARTRATE) [Concomitant]
  9. CYTARABINE (CYTARABINE) [Concomitant]
     Active Substance: CYTARABINE
  10. ICLUSIG [Suspect]
     Active Substance: PONATINIB
     Indication: ACUTE LYMPHOCYTIC LEUKAEMIA
     Route: 048
     Dates: start: 20140211, end: 20140507
  11. VALTREX (VALACLCLOVIR HYDROCHLORIDE) [Concomitant]

REACTIONS (4)
  - Meningitis streptococcal [None]
  - Meningitis [None]
  - Cerebellar tumour [None]
  - Central nervous system leukaemia [None]

NARRATIVE: CASE EVENT DATE: 20140424
